FAERS Safety Report 9703282 (Version 1)
Quarter: 2013Q4

REPORT INFORMATION
  Report Type: Report from Study
  Country: DE (occurrence: DE)
  Receive Date: 20131122
  Receipt Date: 20131122
  Transmission Date: 20140711
  Serious: Yes (Other)
  Sender: FDA-Public Use
  Company Number: DE-AMGEN-DEUCT2013082136

PATIENT
  Age: 72 Year
  Sex: Male

DRUGS (8)
  1. ETANERCEPT [Suspect]
     Indication: PRODUCT USED FOR UNKNOWN INDICATION
     Dosage: 50 MG, QWK
     Route: 065
  2. MTX                                /00113801/ [Concomitant]
     Dosage: UNK
  3. PLAQUENIL                          /00072602/ [Concomitant]
     Dosage: 200 MG, 1X/DAY
  4. CALCIMAGON-D3 [Concomitant]
     Dosage: UNK
  5. RAMILICH [Concomitant]
     Dosage: UNK
  6. AMLODIPINE [Concomitant]
     Dosage: UNK
  7. ALLOPURINOL [Concomitant]
     Dosage: UNK
  8. FERRO SANOL [Concomitant]
     Dosage: UNK

REACTIONS (1)
  - Chronic myelomonocytic leukaemia [Not Recovered/Not Resolved]
